FAERS Safety Report 7437817-5 (Version None)
Quarter: 2011Q2

REPORT INFORMATION
  Report Type: 
  Country: None (occurrence: None)
  Receive Date: 20110421
  Receipt Date: 20110421
  Transmission Date: 20111010
  Serious: Yes (Death)
  Sender: FDA-Public Use
  Company Number: None

PATIENT
  Age: 79 Year
  Sex: Female

DRUGS (4)
  1. PROAIR HFA [Concomitant]
  2. PROCHLORPERAZINE TAB [Concomitant]
  3. REVLIMID [Suspect]
     Indication: MULTIPLE MYELOMA
     Dosage: REVLIMID 15 MG DAILY ORALLY
     Route: 048
     Dates: start: 20090901
  4. ZYPREXA [Concomitant]

REACTIONS (8)
  - DEHYDRATION [None]
  - DIARRHOEA [None]
  - RESPIRATORY DISTRESS [None]
  - MENTAL STATUS CHANGES [None]
  - LIVER FUNCTION TEST ABNORMAL [None]
  - PNEUMONIA [None]
  - PULMONARY CONGESTION [None]
  - CARDIAC ARREST [None]
